FAERS Safety Report 7646691-3 (Version None)
Quarter: 2011Q3

REPORT INFORMATION
  Report Type: 
  Country: None (occurrence: None)
  Receive Date: 20110729
  Receipt Date: 20110729
  Transmission Date: 20111222
  Serious: Yes (Hospitalization)
  Sender: FDA-Public Use
  Company Number: None

PATIENT
  Age: 67 Year
  Sex: Female
  Weight: 59.8748 kg

DRUGS (1)
  1. CEFPROZIL [Suspect]
     Indication: SINUSITIS
     Dosage: 500MG 4 X DAY
     Dates: start: 20110501, end: 20110601

REACTIONS (3)
  - COLITIS [None]
  - DIARRHOEA [None]
  - DEHYDRATION [None]
